FAERS Safety Report 23776828 (Version 2)
Quarter: 2024Q2

REPORT INFORMATION
  Report Type: Report from Study
  Country: US (occurrence: US)
  Receive Date: 20240424
  Receipt Date: 20240619
  Transmission Date: 20240716
  Serious: Yes (Hospitalization)
  Sender: FDA-Public Use
  Company Number: US-GILEAD-2024-0670181

PATIENT
  Sex: Female

DRUGS (5)
  1. AMBRISENTAN [Suspect]
     Active Substance: AMBRISENTAN
     Indication: Pulmonary arterial hypertension
     Dosage: 10 MG, QD
     Route: 065
     Dates: start: 20200911
  2. AMBRISENTAN [Suspect]
     Active Substance: AMBRISENTAN
     Dosage: 10 MG, QD
     Route: 065
     Dates: start: 20240517
  3. XARELTO [Concomitant]
     Active Substance: RIVAROXABAN
  4. UPTRAVI [Concomitant]
     Active Substance: SELEXIPAG
  5. ADEMPAS [Concomitant]
     Active Substance: RIOCIGUAT
     Dosage: 2.5 MG

REACTIONS (4)
  - Headache [Unknown]
  - Abdominal symptom [Unknown]
  - Dizziness [Unknown]
  - Gastrointestinal disorder [Unknown]
